FAERS Safety Report 5335808-1 (Version None)
Quarter: 2007Q2

REPORT INFORMATION
  Report Type: 
  Country: None (occurrence: None)
  Receive Date: 20070322
  Receipt Date: 20061231
  Transmission Date: 20071010
  Serious: No
  Sender: FDA-Public Use
  Company Number: US-CVT-062476

PATIENT
  Age: 54 Year
  Sex: Female

DRUGS (11)
  1. RANEXA [Suspect]
     Indication: ANGINA PECTORIS
     Dosage: SEE IMAGE
     Route: 048
     Dates: start: 20060830, end: 20061115
  2. RANEXA [Suspect]
     Indication: ANGINA PECTORIS
     Dosage: SEE IMAGE
     Route: 048
     Dates: start: 20061116
  3. MOVIK (TRANDOLAPRIL) [Concomitant]
  4. TOPROL-XL [Concomitant]
  5. LIPITOR [Concomitant]
  6. ASPIRIN [Concomitant]
  7. DEMADEX [Concomitant]
  8. LEXAPRO [Concomitant]
  9. XANAX [Concomitant]
  10. CARBIDOPA (CARBIDOPA) [Concomitant]
  11. METOLAZONE [Concomitant]

REACTIONS (6)
  - ANGINA PECTORIS [None]
  - ARRHYTHMIA [None]
  - ASTHENIA [None]
  - BURNING SENSATION [None]
  - FATIGUE [None]
  - SPEECH DISORDER [None]
